FAERS Safety Report 9461136 (Version 2)
Quarter: 2013Q3

REPORT INFORMATION
  Report Type: Spontaneous
  Country: US (occurrence: US)
  Receive Date: 20130816
  Receipt Date: 20130925
  Transmission Date: 20140515
  Serious: Yes (Hospitalization)
  Sender: FDA-Public Use
  Company Number: US-BIOGENIDEC-2013BI074445

PATIENT
  Sex: Female

DRUGS (6)
  1. AVONEX [Suspect]
     Indication: MULTIPLE SCLEROSIS
     Route: 030
     Dates: start: 1998
  2. AVONEX [Suspect]
     Indication: MULTIPLE SCLEROSIS
     Route: 030
     Dates: start: 20130312
  3. PREVACID [Concomitant]
  4. TRAMADOL HCL ER [Concomitant]
  5. SPIRONOLACTONE [Concomitant]
  6. NITROFURANTOIN [Concomitant]

REACTIONS (2)
  - Urinary tract infection [Unknown]
  - Fatigue [Unknown]
